FAERS Safety Report 16381934 (Version 1)
Quarter: 2019Q2

REPORT INFORMATION
  Report Type: Report from Study
  Country: None (occurrence: CA)
  Receive Date: 20190603
  Receipt Date: 20190603
  Transmission Date: 20190711
  Serious: Yes (Other)
  Sender: FDA-Public Use
  Company Number: CA-ABBVIE-17K-028-2190969-00

PATIENT
  Sex: Male

DRUGS (2)
  1. HUMIRA [Suspect]
     Active Substance: ADALIMUMAB
     Route: 058
  2. HUMIRA [Suspect]
     Active Substance: ADALIMUMAB
     Indication: COLITIS ULCERATIVE
     Route: 058
     Dates: start: 20170905

REACTIONS (4)
  - Rash pruritic [Not Recovered/Not Resolved]
  - Rash macular [Not Recovered/Not Resolved]
  - Arthritis [Not Recovered/Not Resolved]
  - Trigger finger [Not Recovered/Not Resolved]

NARRATIVE: CASE EVENT DATE: 2017
